FAERS Safety Report 9355021 (Version 1)
Quarter: 2013Q2

REPORT INFORMATION
  Report Type: Spontaneous
  Country: US (occurrence: US)
  Receive Date: 20130619
  Receipt Date: 20130619
  Transmission Date: 20140414
  Serious: No
  Sender: FDA-Public Use
  Company Number: US-BIOGENIDEC-2013BI054693

PATIENT
  Sex: Female

DRUGS (1)
  1. TYSABRI [Suspect]
     Indication: MULTIPLE SCLEROSIS
     Route: 042
     Dates: start: 20090408, end: 20130410

REACTIONS (4)
  - Incontinence [Not Recovered/Not Resolved]
  - Pancytopenia [Not Recovered/Not Resolved]
  - Poor venous access [Not Recovered/Not Resolved]
  - Multiple sclerosis relapse [Recovered/Resolved]
